FAERS Safety Report 7983550-0 (Version None)
Quarter: 2011Q4

REPORT INFORMATION
  Report Type: 
  Country: None (occurrence: None)
  Receive Date: 20111215
  Receipt Date: 20111208
  Transmission Date: 20120403
  Serious: Yes (Hospitalization)
  Sender: FDA-Public Use
  Company Number: FR-ALLERGAN-1111656US

PATIENT
  Age: 96 Year
  Sex: Female

DRUGS (7)
  1. CELECTOL [Concomitant]
     Indication: HYPERTENSION
     Dosage: 1 MG, UNK
     Route: 048
     Dates: end: 20110727
  2. MORPHINE SULFATE [Suspect]
     Indication: PAIN
     Dosage: 20 MG, QD
     Route: 048
     Dates: start: 20110722, end: 20110725
  3. ACETAMINOPHEN W/ CODEINE [Suspect]
     Indication: PAIN
     Dosage: 3 DF, QD
     Route: 048
     Dates: start: 20110722, end: 20110725
  4. TIAPRIDAL [Concomitant]
     Indication: PRODUCT USED FOR UNKNOWN INDICATION
     Dosage: 8 GTT, QD
     Route: 048
     Dates: end: 20110727
  5. TROSPIUM CHLORIDE [Suspect]
     Indication: PRODUCT USED FOR UNKNOWN INDICATION
     Dosage: 1 DF, QD
     Route: 048
     Dates: end: 20110727
  6. BROMAZEPAM [Concomitant]
     Indication: PRODUCT USED FOR UNKNOWN INDICATION
     Dosage: UNK
     Route: 048
     Dates: end: 20110727
  7. POTASSIUM CHLORIDE [Concomitant]
     Indication: PRODUCT USED FOR UNKNOWN INDICATION
     Dosage: 2 DF, QD
     Route: 048

REACTIONS (2)
  - FAECALOMA [None]
  - URINARY RETENTION [None]
